FAERS Safety Report 23454645 (Version 11)
Quarter: 2024Q2

REPORT INFORMATION
  Report Type: Other
  Country: GB (occurrence: GB)
  Receive Date: 20240130
  Receipt Date: 20240531
  Transmission Date: 20240716
  Serious: Yes (Other)
  Sender: FDA-Public Use
  Company Number: None

PATIENT

DRUGS (11)
  1. GABAPENTIN [Suspect]
     Active Substance: GABAPENTIN
     Indication: Product used for unknown indication
     Dosage: UNK, (CAPSULE HARD)
     Route: 065
  2. GABAPENTIN [Suspect]
     Active Substance: GABAPENTIN
     Dosage: UNK, (CAPSULE HARD)
     Route: 065
  3. GABAPENTIN [Suspect]
     Active Substance: GABAPENTIN
     Dosage: UNK, (CAPSULE HARD)
     Route: 065
  4. GABAPENTIN [Suspect]
     Active Substance: GABAPENTIN
     Dosage: UNK, (CAPSULE HARD)
     Route: 065
  5. SANDOSTATIN LAR DEPOT [Suspect]
     Active Substance: OCTREOTIDE ACETATE
     Indication: Product used for unknown indication
     Dosage: UNK
     Route: 030
  6. SANDOSTATIN LAR DEPOT [Suspect]
     Active Substance: OCTREOTIDE ACETATE
     Dosage: UNK
     Route: 030
  7. SANDOSTATIN LAR DEPOT [Suspect]
     Active Substance: OCTREOTIDE ACETATE
     Dosage: UNK
     Route: 030
  8. SANDOSTATIN LAR DEPOT [Suspect]
     Active Substance: OCTREOTIDE ACETATE
     Dosage: UNK
     Route: 030
  9. SANDOSTATIN LAR DEPOT [Suspect]
     Active Substance: OCTREOTIDE ACETATE
     Dosage: UNK
     Route: 030
  10. SANDOSTATIN LAR DEPOT [Suspect]
     Active Substance: OCTREOTIDE ACETATE
     Dosage: UNK
     Route: 030
  11. SANDOSTATIN LAR DEPOT [Suspect]
     Active Substance: OCTREOTIDE ACETATE
     Dosage: UNK
     Route: 030

REACTIONS (12)
  - Cerebrospinal fluid leakage [Unknown]
  - Metastases to spine [Unknown]
  - Metastases to lung [Unknown]
  - Neoplasm progression [Unknown]
  - Muscle spasms [Not Recovered/Not Resolved]
  - Adverse reaction [Unknown]
  - Treatment delayed [Unknown]
  - Arthralgia [Not Recovered/Not Resolved]
  - Hypertension [Unknown]
  - Dizziness [Unknown]
  - Nausea [Unknown]
  - Vomiting [Unknown]
